FAERS Safety Report 16485964 (Version 1)
Quarter: 2019Q2

REPORT INFORMATION
  Report Type: Report from Study
  Country: RU (occurrence: RU)
  Receive Date: 20190627
  Receipt Date: 20190627
  Transmission Date: 20190711
  Serious: Yes (Hospitalization)
  Sender: FDA-Public Use
  Company Number: RU-ASTRAZENECA-2019SE91727

PATIENT
  Age: 59 Year
  Sex: Male

DRUGS (12)
  1. PENTOXIFYLLINE. [Concomitant]
     Active Substance: PENTOXIFYLLINE
  2. OMEPRAZOLE. [Concomitant]
     Active Substance: OMEPRAZOLE
  3. BRILINTA [Suspect]
     Active Substance: TICAGRELOR
     Indication: MYOCARDIAL INFARCTION
     Route: 048
     Dates: start: 201902
  4. FUROSEMIDE. [Concomitant]
     Active Substance: FUROSEMIDE
  5. KETONAL DUO [Concomitant]
     Active Substance: KETOPROFEN
  6. METOPROLOL. [Concomitant]
     Active Substance: METOPROLOL
  7. ENALAPRIL [Concomitant]
     Active Substance: ENALAPRIL
  8. ALLOPURINOL. [Concomitant]
     Active Substance: ALLOPURINOL
  9. ISOKET [Concomitant]
     Active Substance: ISOSORBIDE DINITRATE
  10. DIUVER [Concomitant]
     Active Substance: TORSEMIDE
  11. KARDIKET [Concomitant]
  12. ATORVASTATIN [Concomitant]
     Active Substance: ATORVASTATIN

REACTIONS (3)
  - Cough [Not Recovered/Not Resolved]
  - Cardiac failure acute [Recovering/Resolving]
  - Dyspnoea [Not Recovered/Not Resolved]

NARRATIVE: CASE EVENT DATE: 201906
